FAERS Safety Report 25836413 (Version 3)
Quarter: 2025Q4

REPORT INFORMATION
  Report Type: Spontaneous
  Country: US (occurrence: US)
  Receive Date: 20250923
  Receipt Date: 20251208
  Transmission Date: 20260117
  Serious: No
  Sender: MERZ
  Company Number: US-Merz Pharmaceuticals GmbH-2025090000077

PATIENT

DRUGS (4)
  1. XEOMIN [Suspect]
     Active Substance: INCOBOTULINUMTOXINA
     Indication: Skin cosmetic procedure
     Dosage: 34 INTERNATIONAL UNIT
     Route: 058
     Dates: start: 20250812, end: 20250812
  2. XEOMIN [Suspect]
     Active Substance: INCOBOTULINUMTOXINA
     Indication: Skin cosmetic procedure
     Dosage: 2 INTERNATIONAL UNIT
     Dates: start: 20250826, end: 20250826
  3. XEOMIN [Suspect]
     Active Substance: INCOBOTULINUMTOXINA
     Indication: Skin wrinkling
  4. XEOMIN [Suspect]
     Active Substance: INCOBOTULINUMTOXINA
     Indication: Skin wrinkling

REACTIONS (4)
  - Therapeutic response decreased [Not Recovered/Not Resolved]
  - Incorrect route of product administration [Unknown]
  - Product preparation issue [Unknown]
  - Underdose [Unknown]

NARRATIVE: CASE EVENT DATE: 20250801
